FAERS Safety Report 14527147 (Version 1)
Quarter: 2018Q1

REPORT INFORMATION
  Report Type: Spontaneous
  Country: US (occurrence: US)
  Receive Date: 20180213
  Receipt Date: 20180213
  Transmission Date: 20180509
  Serious: Yes (Life-Threatening)
  Sender: FDA-Public Use
  Company Number: None

PATIENT
  Age: 69 Year
  Sex: Male
  Weight: 104.33 kg

DRUGS (9)
  1. REPATHA [Suspect]
     Active Substance: EVOLOCUMAB
     Indication: CARDIAC DISORDER
  2. BUMETANIDE. [Concomitant]
     Active Substance: BUMETANIDE
  3. LOW DOSE ASPIRIN [Concomitant]
     Active Substance: ASPIRIN
  4. CARVEDILOL. [Concomitant]
     Active Substance: CARVEDILOL
  5. LEVYTHYROXINE [Concomitant]
  6. MENS 50+ VITAMIN [Concomitant]
  7. ELIQUIS [Concomitant]
     Active Substance: APIXABAN
  8. DIFIBRILLATOR [Concomitant]
  9. PACEMAKER [Concomitant]

REACTIONS (8)
  - Dysphonia [None]
  - Throat tightness [None]
  - Pruritus [None]
  - Asthenia [None]
  - Nasopharyngitis [None]
  - Influenza like illness [None]
  - Cough [None]
  - Wheezing [None]

NARRATIVE: CASE EVENT DATE: 20171231
